FAERS Safety Report 4744732-4 (Version None)
Quarter: 2005Q3

REPORT INFORMATION
  Report Type: 
  Country: None (occurrence: None)
  Receive Date: 20050815
  Receipt Date: 20050803
  Transmission Date: 20060218
  Serious: Yes (Death, Other)
  Sender: FDA-Public Use
  Company Number: US-BRISTOL-MYERS SQUIBB COMPANY-13065412

PATIENT
  Sex: Female

DRUGS (2)
  1. ABILIFY [Suspect]
     Route: 064
     Dates: start: 20050101, end: 20050225
  2. LEXAPRO [Concomitant]
     Dosage: DOSE INCR TO 20 MG 18-NOV-2004 TO 25-FEB-2005,10 MG 03-MAR-2005 TO 05-05-2005,THEN 20 MG 05-05-2005
     Route: 064
     Dates: start: 20050101, end: 20050601

REACTIONS (5)
  - FOETAL ALCOHOL SYNDROME [None]
  - INTRA-UTERINE DEATH [None]
  - STILLBIRTH [None]
  - TRISOMY 21 [None]
  - UMBILICAL CORD ABNORMALITY [None]
